FAERS Safety Report 18617734 (Version 1)
Quarter: 2020Q4

REPORT INFORMATION
  Report Type: Spontaneous
  Country: US (occurrence: US)
  Receive Date: 20201215
  Receipt Date: 20201215
  Transmission Date: 20210114
  Serious: No
  Sender: FDA-Public Use
  Company Number: US-BLUEPRINT MEDICINES CORPORATION-SP-US-2020-001298

PATIENT
  Sex: Female

DRUGS (1)
  1. AYVAKIT [Suspect]
     Active Substance: AVAPRITINIB
     Indication: NEOPLASM MALIGNANT
     Route: 048
     Dates: start: 20200520

REACTIONS (5)
  - Swelling face [Unknown]
  - Hair colour changes [Unknown]
  - Off label use [Unknown]
  - Peripheral swelling [Unknown]
  - Pruritus [Unknown]
